FAERS Safety Report 7039718-3 (Version None)
Quarter: 2010Q4

REPORT INFORMATION
  Report Type: 
  Country: None (occurrence: None)
  Receive Date: 20101012
  Receipt Date: 20101005
  Transmission Date: 20110411
  Serious: Yes (Death)
  Sender: FDA-Public Use
  Company Number: GB-BAXTER-2010BH025237

PATIENT
  Age: 43 Year
  Sex: Male

DRUGS (6)
  1. GENTAMICIN [Suspect]
     Indication: SEPSIS
     Route: 065
  2. METRONIDAZOLE [Suspect]
     Indication: SEPSIS
     Route: 065
  3. ACYCLOVIR SODIUM [Suspect]
     Indication: HERPES SIMPLEX
     Route: 065
  4. FLUCLOXACILLIN [Suspect]
     Indication: SEPSIS
     Route: 042
  5. TAZOCIN [Suspect]
     Indication: SEPSIS
     Route: 065
  6. LOW MOLECULAR WEIGHT HEPARIN [Concomitant]
     Indication: THROMBOSIS PROPHYLAXIS
     Route: 065

REACTIONS (1)
  - TREATMENT FAILURE [None]
